FAERS Safety Report 7793408-8 (Version None)
Quarter: 2011Q4

REPORT INFORMATION
  Report Type: 
  Country: None (occurrence: None)
  Receive Date: 20111003
  Receipt Date: 20110922
  Transmission Date: 20120403
  Serious: Yes (Hospitalization)
  Sender: FDA-Public Use
  Company Number: FR-ASTRAZENECA-2011SE54305

PATIENT
  Age: 18514 Day
  Sex: Male

DRUGS (3)
  1. CRESTOR [Suspect]
     Indication: HYPERCHOLESTEROLAEMIA
     Route: 048
     Dates: start: 20090811
  2. CRESTOR [Suspect]
     Route: 048
     Dates: start: 20100101, end: 20110823
  3. CRESTOR [Suspect]
     Route: 048
     Dates: end: 20100101

REACTIONS (5)
  - MUSCLE FATIGUE [None]
  - RHABDOMYOLYSIS [None]
  - PROTEINURIA [None]
  - DYSURIA [None]
  - MYALGIA [None]
